FAERS Safety Report 16686062 (Version 1)
Quarter: 2019Q3

REPORT INFORMATION
  Report Type: Spontaneous
  Country: US (occurrence: US)
  Receive Date: 20190809
  Receipt Date: 20190809
  Transmission Date: 20191004
  Serious: No
  Sender: FDA-Public Use
  Company Number: US-GLAXOSMITHKLINE-US2019140434

PATIENT

DRUGS (3)
  1. FLONASE ALLERGY RELIEF [Suspect]
     Active Substance: FLUTICASONE PROPIONATE
     Indication: SINUSITIS
  2. FLONASE ALLERGY RELIEF [Suspect]
     Active Substance: FLUTICASONE PROPIONATE
     Indication: EPISTAXIS
  3. FLONASE ALLERGY RELIEF [Suspect]
     Active Substance: FLUTICASONE PROPIONATE
     Indication: MULTIPLE ALLERGIES
     Dosage: UNK

REACTIONS (7)
  - Epistaxis [Unknown]
  - Headache [Unknown]
  - Off label use [Unknown]
  - Oropharyngeal pain [Unknown]
  - Nasal discomfort [Unknown]
  - Condition aggravated [Unknown]
  - Product use in unapproved indication [Unknown]
